FAERS Safety Report 6919271-2 (Version None)
Quarter: 2010Q3

REPORT INFORMATION
  Report Type: 
  Country: None (occurrence: None)
  Receive Date: 20100728
  Receipt Date: 20091221
  Transmission Date: 20110219
  Serious: Yes (Hospitalization)
  Sender: FDA-Public Use
  Company Number: MYVW-PR-0910S-0071

PATIENT
  Sex: Female

DRUGS (3)
  1. MYOVIEW [Suspect]
     Indication: PRODUCT USED FOR UNKNOWN INDICATION
     Dosage: 1221 MBQ, SINGLE DOSE, I.V.
     Route: 042
     Dates: start: 20091016, end: 20091016
  2. MYOVIEW [Suspect]
  3. MYOVIEW [Suspect]

REACTIONS (4)
  - ANAPHYLACTOID REACTION [None]
  - BRONCHOSPASM [None]
  - DYSPNOEA [None]
  - LARYNGOSPASM [None]
